FAERS Safety Report 13011498 (Version 2)
Quarter: 2017Q1

REPORT INFORMATION
  Report Type: Spontaneous
  Country: DE (occurrence: DE)
  Receive Date: 20161209
  Receipt Date: 20170104
  Transmission Date: 20170428
  Serious: Yes (Hospitalization, Other)
  Sender: FDA-Public Use
  Company Number: DE-ROCHE-1864770

PATIENT
  Age: 87 Year
  Sex: Male

DRUGS (3)
  1. RIVOTRIL [Suspect]
     Active Substance: CLONAZEPAM
     Indication: RESTLESSNESS
     Route: 048
     Dates: start: 20161111
  2. RIVOTRIL [Suspect]
     Active Substance: CLONAZEPAM
     Route: 048
     Dates: start: 20161118
  3. RIVOTRIL [Suspect]
     Active Substance: CLONAZEPAM
     Route: 048
     Dates: start: 20161205

REACTIONS (8)
  - Hypotonia [Not Recovered/Not Resolved]
  - Off label use [Unknown]
  - Lethargy [Unknown]
  - Apathy [Unknown]
  - Overdose [Unknown]
  - Muscle atrophy [Unknown]
  - Speech disorder [Not Recovered/Not Resolved]
  - Fall [Unknown]
